FAERS Safety Report 5588951-6 (Version None)
Quarter: 2007Q4

REPORT INFORMATION
  Report Type: 
  Country: None (occurrence: None)
  Receive Date: 20071211
  Receipt Date: 20071107
  Transmission Date: 20080405
  Serious: No
  Sender: FDA-Public Use
  Company Number: 002#2#2007-00309

PATIENT
  Sex: Female

DRUGS (1)
  1. NEUPRO [Suspect]

REACTIONS (2)
  - POOR QUALITY SLEEP [None]
  - SALIVARY HYPERSECRETION [None]
